FAERS Safety Report 9549970 (Version 1)
Quarter: 2013Q3

REPORT INFORMATION
  Report Type: Spontaneous
  Country: IT (occurrence: IT)
  Receive Date: 20130924
  Receipt Date: 20130924
  Transmission Date: 20140515
  Serious: Yes (Other)
  Sender: FDA-Public Use
  Company Number: PHHY2013IT105956

PATIENT
  Sex: Male

DRUGS (6)
  1. BISOPROLOL [Suspect]
     Dosage: UNK UKN, UNK
     Dates: start: 20130101, end: 20130704
  2. AMIODARONE [Suspect]
     Dosage: UNK UKN, UNK
     Dates: start: 20130101, end: 20130704
  3. COUMADIN//WARFARIN SODIUM [Concomitant]
     Dosage: 5 MG, UNK
  4. ROSUVASTATIN [Concomitant]
  5. ASA [Concomitant]
  6. LANSOPRAZOLE [Concomitant]

REACTIONS (2)
  - Injury [Recovering/Resolving]
  - Syncope [Recovering/Resolving]
